FAERS Safety Report 5011804-9 (Version None)
Quarter: 2006Q2

REPORT INFORMATION
  Report Type: 
  Country: None (occurrence: None)
  Receive Date: 20060524
  Receipt Date: 20060524
  Transmission Date: 20061013
  Serious: No
  Sender: FDA-Public Use
  Company Number: None

PATIENT
  Age: 58 Year
  Sex: Female
  Weight: 47 kg

DRUGS (4)
  1. DILAUDID [Suspect]
     Indication: HIP ARTHROPLASTY
     Dosage: PCA
  2. DILAUDID [Suspect]
     Indication: PROCEDURAL PAIN
     Dosage: PCA
  3. TIGAN [Suspect]
  4. VALIUM [Suspect]

REACTIONS (14)
  - BLOOD CALCIUM DECREASED [None]
  - BLOOD MAGNESIUM DECREASED [None]
  - BLOOD PHOSPHORUS DECREASED [None]
  - BLOOD POTASSIUM DECREASED [None]
  - BLOOD SODIUM DECREASED [None]
  - CARDIO-RESPIRATORY ARREST [None]
  - CONVULSION [None]
  - ELECTROENCEPHALOGRAM ABNORMAL [None]
  - ELECTROLYTE IMBALANCE [None]
  - HYPOXIA [None]
  - POSTICTAL STATE [None]
  - RESPIRATORY FAILURE [None]
  - TONGUE BITING [None]
  - TOXIC INDUCED ENCEPHALOPATHY [None]
